FAERS Safety Report 11215453 (Version 1)
Quarter: 2015Q2

REPORT INFORMATION
  Report Type: Spontaneous
  Country: US (occurrence: None)
  Receive Date: 20150609
  Receipt Date: 20150609
  Transmission Date: 20150821
  Serious: Yes (Hospitalization)
  Sender: FDA-Public Use
  Company Number: 413673

PATIENT
  Age: 14 Year
  Sex: Female
  Weight: 41.9 kg

DRUGS (2)
  1. NORDITROPIN [Suspect]
     Active Substance: SOMATROPIN
     Indication: GROWTH HORMONE DEFICIENCY
     Dosage: SIX TIMES PER WEEK
     Route: 058
     Dates: start: 20121023, end: 201406
  2. NORDITROPIN [Suspect]
     Active Substance: SOMATROPIN
     Indication: BODY HEIGHT BELOW NORMAL
     Dosage: SIX TIMES PER WEEK
     Route: 058
     Dates: start: 20121023, end: 201406

REACTIONS (1)
  - Epiphysiolysis [None]

NARRATIVE: CASE EVENT DATE: 2014
